FAERS Safety Report 14019414 (Version 5)
Quarter: 2018Q3

REPORT INFORMATION
  Report Type: Report from Study
  Country: JP (occurrence: JP)
  Receive Date: 20170928
  Receipt Date: 20180801
  Transmission Date: 20181010
  Serious: Yes (Death, Hospitalization, Other)
  Sender: FDA-Public Use
  Company Number: JP-INCYTE CORPORATION-2016IN001851

PATIENT

DRUGS (61)
  1. PREDNISOLONE. [Concomitant]
     Active Substance: PREDNISOLONE
     Dosage: 2 MG, UNK
     Route: 048
     Dates: end: 20170705
  2. RED BLOOD CELLS [Concomitant]
     Active Substance: HUMAN RED BLOOD CELL
     Dosage: 2 IU, UNK
     Route: 065
     Dates: start: 20160711, end: 20160711
  3. RED BLOOD CELLS [Concomitant]
     Active Substance: HUMAN RED BLOOD CELL
     Dosage: 2 IU, UNK
     Route: 065
     Dates: start: 20161003, end: 20161003
  4. RED BLOOD CELLS [Concomitant]
     Active Substance: HUMAN RED BLOOD CELL
     Dosage: 2 IU, UNK
     Route: 065
     Dates: start: 20170501, end: 20170501
  5. RED BLOOD CELLS [Concomitant]
     Active Substance: HUMAN RED BLOOD CELL
     Dosage: 2 IU, UNK
     Route: 065
     Dates: start: 20170626, end: 20170626
  6. PLATELETS [Concomitant]
     Active Substance: HUMAN PLATELET, ALLOGENIC
     Dosage: 10 IU, UNK
     Route: 065
     Dates: start: 20170708, end: 20170708
  7. HYDREA [Concomitant]
     Active Substance: HYDROXYUREA
     Indication: MYELOFIBROSIS
     Dosage: 500 MG, QOD
     Route: 048
     Dates: start: 20170327, end: 20170626
  8. HYDREA [Concomitant]
     Active Substance: HYDROXYUREA
     Dosage: 500 MG, UNK
     Route: 048
     Dates: start: 20170627, end: 20170710
  9. JAKAVI [Suspect]
     Active Substance: RUXOLITINIB
     Dosage: 10 MG, QD
     Route: 048
     Dates: start: 20150105, end: 20150301
  10. JAKAVI [Suspect]
     Active Substance: RUXOLITINIB
     Dosage: 10 MG, BID
     Route: 048
     Dates: start: 20150525, end: 20150628
  11. JAKAVI [Suspect]
     Active Substance: RUXOLITINIB
     Dosage: 15 MG, QD
     Route: 048
     Dates: start: 20150707, end: 20150809
  12. JAKAVI [Suspect]
     Active Substance: RUXOLITINIB
     Dosage: 10 MG, BID
     Route: 048
     Dates: start: 20170123, end: 20170410
  13. JAKAVI [Suspect]
     Active Substance: RUXOLITINIB
     Dosage: 15 MG (10 MG MORNING, 5 MG EVENING), BID
     Route: 048
     Dates: start: 20170411, end: 20170604
  14. RED BLOOD CELLS [Concomitant]
     Active Substance: HUMAN RED BLOOD CELL
     Dosage: 2 IU, UNK
     Route: 065
     Dates: start: 20170220, end: 20170220
  15. RED BLOOD CELLS [Concomitant]
     Active Substance: HUMAN RED BLOOD CELL
     Dosage: 2 IU, UNK
     Route: 065
     Dates: start: 20170522, end: 20170522
  16. JAKAVI [Suspect]
     Active Substance: RUXOLITINIB
     Dosage: 15 MG, QD
     Route: 048
     Dates: start: 20151006, end: 20151101
  17. JAKAVI [Suspect]
     Active Substance: RUXOLITINIB
     Dosage: 10 MG, BID
     Route: 048
     Dates: start: 20151102, end: 20151130
  18. JAKAVI [Suspect]
     Active Substance: RUXOLITINIB
     Dosage: 15 MG (10 MG MORNING, 5 MG EVENING), BID
     Route: 048
     Dates: start: 20161226, end: 20170122
  19. ALKERAN [Concomitant]
     Active Substance: MELPHALAN
     Dosage: 2 MG, UNK
     Route: 048
     Dates: start: 20150707, end: 20150810
  20. ALKERAN [Concomitant]
     Active Substance: MELPHALAN
     Dosage: 2 MG, UNK
     Route: 048
     Dates: start: 20161226, end: 20170710
  21. RINDERON V [Concomitant]
     Active Substance: BETAMETHASONE VALERATE
     Indication: MYELOFIBROSIS
     Dosage: 1 MG, QD
     Route: 065
     Dates: end: 20150525
  22. RINDERON V [Concomitant]
     Active Substance: BETAMETHASONE VALERATE
     Dosage: 0.5 MG, UNK
     Route: 048
     Dates: start: 20150526, end: 20150622
  23. PREDNISOLONE. [Concomitant]
     Active Substance: PREDNISOLONE
     Indication: MYELOFIBROSIS
     Dosage: 2 MG, UNK
     Route: 065
     Dates: start: 20150707, end: 20150913
  24. RED BLOOD CELLS [Concomitant]
     Active Substance: HUMAN RED BLOOD CELL
     Dosage: 2 IU, UNK
     Route: 065
     Dates: start: 20150919, end: 20150919
  25. RED BLOOD CELLS [Concomitant]
     Active Substance: HUMAN RED BLOOD CELL
     Dosage: 2 IU, UNK
     Route: 065
     Dates: start: 20160905, end: 20160905
  26. RED BLOOD CELLS [Concomitant]
     Active Substance: HUMAN RED BLOOD CELL
     Dosage: 2 IU, UNK
     Route: 065
     Dates: start: 20170529, end: 20170529
  27. RED BLOOD CELLS [Concomitant]
     Active Substance: HUMAN RED BLOOD CELL
     Dosage: 2 IU, UNK
     Route: 065
     Dates: start: 20170702, end: 20170702
  28. PLATELETS [Concomitant]
     Active Substance: HUMAN PLATELET, ALLOGENIC
     Indication: MYELOFIBROSIS
     Dosage: 10 IU, UNK
     Route: 065
     Dates: start: 20170411, end: 20170411
  29. HYDREA [Concomitant]
     Active Substance: HYDROXYUREA
     Indication: MYELOFIBROSIS
     Dosage: 500 MG, UNK
     Route: 048
     Dates: start: 20170306
  30. JAKAVI [Suspect]
     Active Substance: RUXOLITINIB
     Dosage: 15 MG, QD
     Route: 048
     Dates: start: 20150302, end: 20150524
  31. ALKERAN [Concomitant]
     Active Substance: MELPHALAN
     Dosage: 2 MG, UNK
     Route: 048
     Dates: start: 20150623, end: 20150629
  32. RED BLOOD CELLS [Concomitant]
     Active Substance: HUMAN RED BLOOD CELL
     Dosage: 2 IU, UNK
     Route: 065
     Dates: start: 20150817, end: 20150817
  33. RED BLOOD CELLS [Concomitant]
     Active Substance: HUMAN RED BLOOD CELL
     Dosage: 2 IU, UNK
     Route: 065
     Dates: start: 20170123, end: 20170123
  34. RED BLOOD CELLS [Concomitant]
     Active Substance: HUMAN RED BLOOD CELL
     Dosage: 2 IU, UNK
     Route: 065
     Dates: start: 20170612, end: 20170612
  35. JAKAVI [Suspect]
     Active Substance: RUXOLITINIB
     Dosage: 5 MG, QD
     Route: 048
     Dates: start: 20150907, end: 20150913
  36. JAKAVI [Suspect]
     Active Substance: RUXOLITINIB
     Dosage: 15 MG (10 MG MORNING, 5 MG EVENING), BID
     Route: 048
     Dates: start: 20151201, end: 20161127
  37. JAKAVI [Suspect]
     Active Substance: RUXOLITINIB
     Dosage: 10 MG, BID
     Route: 048
     Dates: start: 20161128, end: 20161225
  38. ALKERAN [Concomitant]
     Active Substance: MELPHALAN
     Indication: MYELOFIBROSIS
     Dosage: 2 MG, QOD
     Route: 048
     Dates: start: 20141208
  39. RED BLOOD CELLS [Concomitant]
     Active Substance: HUMAN RED BLOOD CELL
     Dosage: 2 IU, UNK
     Route: 065
     Dates: start: 20170417, end: 20170417
  40. DAIPHEN [Concomitant]
     Active Substance: SULFAMETHOXAZOLE\TRIMETHOPRIM
     Indication: OPPORTUNISTIC INFECTION PROPHYLAXIS
     Dosage: 1 DF, UNK
     Route: 048
     Dates: end: 20150622
  41. ITRIZOLE [Concomitant]
     Active Substance: ITRACONAZOLE
     Indication: OPPORTUNISTIC INFECTION PROPHYLAXIS
     Dosage: 20 ML, UNK
     Route: 048
     Dates: end: 20150622
  42. VALACICLOVIR HYDROCHLORIDE [Concomitant]
     Active Substance: VALACYCLOVIR HYDROCHLORIDE
     Indication: OPPORTUNISTIC INFECTION PROPHYLAXIS
     Dosage: 500 MG, QD
     Route: 048
     Dates: start: 20170220, end: 20170710
  43. JAKAVI [Suspect]
     Active Substance: RUXOLITINIB
     Dosage: 5 MG, BID
     Route: 048
     Dates: start: 20150810, end: 20150906
  44. RED BLOOD CELLS [Concomitant]
     Active Substance: HUMAN RED BLOOD CELL
     Indication: MYELOFIBROSIS
     Dosage: 2 IU, UNK
     Route: 065
     Dates: start: 20150702, end: 20150702
  45. RED BLOOD CELLS [Concomitant]
     Active Substance: HUMAN RED BLOOD CELL
     Dosage: 2 IU, UNK
     Route: 065
     Dates: start: 20170327, end: 20170327
  46. RED BLOOD CELLS [Concomitant]
     Active Substance: HUMAN RED BLOOD CELL
     Dosage: 2 IU, UNK
     Route: 065
     Dates: start: 20170410, end: 20170410
  47. PLATELETS [Concomitant]
     Active Substance: HUMAN PLATELET, ALLOGENIC
     Dosage: 10 IU, UNK
     Route: 065
     Dates: start: 20170526, end: 20170526
  48. PLATELETS [Concomitant]
     Active Substance: HUMAN PLATELET, ALLOGENIC
     Dosage: 10 IU, UNK
     Route: 065
     Dates: start: 20170706, end: 20170706
  49. JAKAVI [Suspect]
     Active Substance: RUXOLITINIB
     Indication: MYELOFIBROSIS
     Dosage: 5 MG, QD
     Route: 048
     Dates: start: 20141208, end: 20150104
  50. PREDNISOLONE. [Concomitant]
     Active Substance: PREDNISOLONE
     Dosage: 2 MG, UNK
     Route: 065
     Dates: start: 20150918, end: 20151201
  51. RED BLOOD CELLS [Concomitant]
     Active Substance: HUMAN RED BLOOD CELL
     Dosage: 2 IU, UNK
     Route: 065
     Dates: start: 20161118, end: 20161118
  52. RED BLOOD CELLS [Concomitant]
     Active Substance: HUMAN RED BLOOD CELL
     Dosage: 2 IU, UNK
     Route: 065
     Dates: start: 20170306, end: 20170306
  53. RED BLOOD CELLS [Concomitant]
     Active Substance: HUMAN RED BLOOD CELL
     Dosage: 2 IU, UNK
     Route: 065
     Dates: start: 20170515, end: 20170515
  54. JAKAVI [Suspect]
     Active Substance: RUXOLITINIB
     Dosage: 5 MG, BID
     Route: 048
     Dates: start: 20150918, end: 20151005
  55. JAKAVI [Suspect]
     Active Substance: RUXOLITINIB
     Dosage: 10 MG, BID
     Route: 048
     Dates: start: 20170605, end: 20170710
  56. PREDNISOLONE. [Concomitant]
     Active Substance: PREDNISOLONE
     Indication: MYELOFIBROSIS
     Dosage: 2 MG, UNK
     Route: 065
     Dates: start: 20150623, end: 20150629
  57. RED BLOOD CELLS [Concomitant]
     Active Substance: HUMAN RED BLOOD CELL
     Dosage: 2 IU, UNK
     Route: 065
     Dates: start: 20160808, end: 20160808
  58. RED BLOOD CELLS [Concomitant]
     Active Substance: HUMAN RED BLOOD CELL
     Dosage: 2 IU, UNK
     Route: 065
     Dates: start: 20161226, end: 20161226
  59. RED BLOOD CELLS [Concomitant]
     Active Substance: HUMAN RED BLOOD CELL
     Dosage: 2 IU, UNK
     Route: 065
     Dates: start: 20170424, end: 20170424
  60. PLATELETS [Concomitant]
     Active Substance: HUMAN PLATELET, ALLOGENIC
     Dosage: 10 IU, UNK
     Route: 065
     Dates: start: 20170703, end: 20170703
  61. PLATELETS [Concomitant]
     Active Substance: HUMAN PLATELET, ALLOGENIC
     Dosage: 10 IU, UNK
     Route: 065
     Dates: start: 20170704, end: 20170704

REACTIONS (13)
  - Hyperuricaemia [Recovering/Resolving]
  - Diffuse large B-cell lymphoma [Not Recovered/Not Resolved]
  - Platelet count decreased [Recovering/Resolving]
  - Malaise [Recovering/Resolving]
  - Fatigue [Not Recovered/Not Resolved]
  - Decreased appetite [Recovering/Resolving]
  - Concomitant disease aggravated [Recovering/Resolving]
  - Intestinal perforation [Fatal]
  - Haemoglobin decreased [Recovering/Resolving]
  - Ophthalmic herpes simplex [Recovering/Resolving]
  - Myelofibrosis [Not Recovered/Not Resolved]
  - Neoplasm skin [Recovered/Resolved]
  - White blood cell count increased [Unknown]

NARRATIVE: CASE EVENT DATE: 20150330
